FAERS Safety Report 20769149 (Version 1)
Quarter: 2022Q2

REPORT INFORMATION
  Report Type: Spontaneous
  Country: US (occurrence: US)
  Receive Date: 20220429
  Receipt Date: 20220429
  Transmission Date: 20220721
  Serious: No
  Sender: FDA-Public Use
  Company Number: US-TARO-2021TAR00880

PATIENT

DRUGS (1)
  1. FLUOROURACIL [Suspect]
     Active Substance: FLUOROURACIL
     Indication: Precancerous condition
     Dosage: UNK, BID, FOR 2-4 WEEKS, TOPICAL ON CHEST
     Route: 061
     Dates: start: 202108

REACTIONS (1)
  - Application site erythema [Not Recovered/Not Resolved]
